FAERS Safety Report 9422670 (Version 1)
Quarter: 2013Q3

REPORT INFORMATION
  Report Type: Spontaneous
  Country: US (occurrence: None)
  Receive Date: 20130724
  Receipt Date: 20130724
  Transmission Date: 20140515
  Serious: Yes (Hospitalization)
  Sender: FDA-Public Use
  Company Number: 2013AP006773

PATIENT
  Age: 62 Year
  Sex: Male

DRUGS (10)
  1. MIRTAZAPINE TABLETS [Suspect]
     Indication: SCHIZOAFFECTIVE DISORDER
  2. CLOZAPINE [Suspect]
     Indication: SCHIZOAFFECTIVE DISORDER
  3. PARACETAMOL [Concomitant]
  4. SALBUTAMOL [Concomitant]
  5. ATENOLOL [Concomitant]
  6. GEMFIBROZIL [Concomitant]
  7. GLIPIZIDE [Concomitant]
  8. LOPAZEPAM 0.5 MG WATSON LAB GENERIC [Concomitant]
  9. METFORMIN [Concomitant]
  10. OXYBUTYNIN [Concomitant]

REACTIONS (7)
  - Confusional state [None]
  - Agitation [None]
  - Aggression [None]
  - Catatonia [None]
  - Hallucination, auditory [None]
  - Toxicity to various agents [None]
  - Drug interaction [None]
